FAERS Safety Report 9692646 (Version 3)
Quarter: 2013Q4

REPORT INFORMATION
  Report Type: Spontaneous
  Country: GB (occurrence: GB)
  Receive Date: 20131118
  Receipt Date: 20131205
  Transmission Date: 20140711
  Serious: Yes (Other)
  Sender: FDA-Public Use
  Company Number: PHFR2012GB006654

PATIENT
  Age: 19 Year
  Sex: Female

DRUGS (2)
  1. CLOZARIL [Suspect]
     Indication: SCHIZOPHRENIA
     Dosage: 225 MG, DAILY
     Route: 048
     Dates: start: 20120720
  2. CLOZARIL [Suspect]
     Indication: PSYCHOTIC DISORDER

REACTIONS (2)
  - Oropharyngeal pain [Recovered/Resolved]
  - Tonsillitis [Recovered/Resolved]
